APPROVED DRUG PRODUCT: ERYTHROMYCIN ESTOLATE
Active Ingredient: ERYTHROMYCIN ESTOLATE
Strength: EQ 250MG BASE/5ML
Dosage Form/Route: SUSPENSION;ORAL
Application: A062409 | Product #001
Applicant: ALPHARMA US PHARMACEUTICALS DIVISION
Approved: Dec 16, 1982 | RLD: No | RS: No | Type: DISCN